FAERS Safety Report 15829764 (Version 1)
Quarter: 2019Q1

REPORT INFORMATION
  Report Type: Spontaneous
  Country: US (occurrence: US)
  Receive Date: 20190115
  Receipt Date: 20190115
  Transmission Date: 20190417
  Serious: No
  Sender: FDA-Public Use
  Company Number: US-ALLERGAN-1853049US

PATIENT
  Age: 6 Year
  Sex: Female

DRUGS (2)
  1. RESTASIS [Suspect]
     Active Substance: CYCLOSPORINE
     Indication: ECZEMA EYELIDS
     Dosage: 2 GTT, QD
     Route: 047
     Dates: start: 2016
  2. ANTIHISTAMINE SYRUP [Concomitant]
     Indication: HYPERSENSITIVITY
     Dosage: UNK, BID
     Route: 048

REACTIONS (1)
  - Off label use [Unknown]
